FAERS Safety Report 23219310 (Version 2)
Quarter: 2023Q4

REPORT INFORMATION
  Report Type: Spontaneous
  Country: US (occurrence: US)
  Receive Date: 20231122
  Receipt Date: 20231124
  Transmission Date: 20240110
  Serious: No
  Sender: FDA-Public Use
  Company Number: US-BAYER-2023A167218

PATIENT
  Age: 23 Year
  Sex: Female

DRUGS (1)
  1. MIRENA [Suspect]
     Active Substance: LEVONORGESTREL
     Indication: Contraception
     Dosage: 20?G/DAY
     Route: 015
     Dates: start: 20230521, end: 20230720

REACTIONS (5)
  - Device dislocation [Recovered/Resolved]
  - Abdominal pain [None]
  - Pelvic pain [None]
  - Cyst [None]
  - Genital haemorrhage [None]

NARRATIVE: CASE EVENT DATE: 20230719
